FAERS Safety Report 8673382 (Version 2)
Quarter: 2012Q4

REPORT INFORMATION
  Report Type: 
  Country: FR (occurrence: FR)
  Receive Date: 20120719
  Receipt Date: 20120919
  Transmission Date: 20130627
  Serious: Yes (Death)
  Sender: FDA-Public Use
  Company Number: FR-BRISTOL-MYERS SQUIBB COMPANY-16755563

PATIENT
  Age: 7 Year
  Sex: Female
  Weight: 40 kg

DRUGS (5)
  1. ORENCIA FOR INJ 250 MG/VIAL [Suspect]
     Indication: RHEUMATOID ARTHRITIS
     Dosage: Duration:at least 3 yrs
     Dates: start: 201103
  2. LERCAN [Concomitant]
  3. SOLUPRED [Concomitant]
     Dates: start: 1999
  4. LYRICA [Concomitant]
  5. PLAVIX [Concomitant]

REACTIONS (1)
  - Cerebral haemorrhage [Fatal]
